FAERS Safety Report 7420503-5 (Version None)
Quarter: 2011Q2

REPORT INFORMATION
  Report Type: 
  Country: None (occurrence: None)
  Receive Date: 20110418
  Receipt Date: 20110411
  Transmission Date: 20111010
  Serious: Yes (Death, Hospitalization)
  Sender: FDA-Public Use
  Company Number: CO-JNJFOC-20110405052

PATIENT
  Age: 72 Year
  Sex: Male

DRUGS (1)
  1. DORIBAX [Suspect]
     Indication: PRODUCT USED FOR UNKNOWN INDICATION
     Route: 041

REACTIONS (2)
  - BRAIN TUMOUR OPERATION [None]
  - EMPYEMA [None]
